FAERS Safety Report 14744065 (Version 1)
Quarter: 2018Q2

REPORT INFORMATION
  Report Type: Spontaneous
  Country: US (occurrence: US)
  Receive Date: 20180411
  Receipt Date: 20180411
  Transmission Date: 20180711
  Serious: Yes (Hospitalization)
  Sender: FDA-Public Use
  Company Number: US-COLGATE PALMOLIVE COMPANY-20180400772

PATIENT

DRUGS (1)
  1. TOMS NATURALLY DRY ANTIPERSPIRANT DEODORANT - NORTHWOODS WETNESS PROTECTION [Suspect]
     Active Substance: ALUMINUM CHLOROHYDRATE
     Indication: POOR PERSONAL HYGIENE
     Dosage: 1-2 SWIPES ONCE A DAY, QD
     Dates: start: 201802, end: 201802

REACTIONS (6)
  - Loss of personal independence in daily activities [Recovered/Resolved]
  - Fall [Recovered/Resolved]
  - Pain [Recovered/Resolved]
  - Insomnia [Recovered/Resolved]
  - Rash [Recovered/Resolved]
  - Infection [Recovered/Resolved]

NARRATIVE: CASE EVENT DATE: 2018
